FAERS Safety Report 5779065-0 (Version None)
Quarter: 2008Q2

REPORT INFORMATION
  Report Type: 
  Country: None (occurrence: None)
  Receive Date: 20080613
  Receipt Date: 20071102
  Transmission Date: 20081010
  Serious: Yes (Other)
  Sender: FDA-Public Use
  Company Number: PHEH2007US14391

PATIENT
  Age: 78 Year
  Sex: Male

DRUGS (1)
  1. EXELON [Suspect]
     Dosage: 3 MG, BID, ORAL : 4.5 MG, BID, ORAL : 3 MG, BID, ORAL
     Route: 048

REACTIONS (5)
  - DELUSION [None]
  - DIZZINESS [None]
  - HALLUCINATION [None]
  - NAUSEA [None]
  - VOMITING [None]
